FAERS Safety Report 14790222 (Version 1)
Quarter: 2018Q2

REPORT INFORMATION
  Report Type: Spontaneous
  Country: US (occurrence: US)
  Receive Date: 20180413
  Receipt Date: 20180413
  Transmission Date: 20180711
  Serious: Yes (Disabling)
  Sender: FDA-Public Use
  Company Number: None

PATIENT
  Age: 81 Year
  Sex: Female
  Weight: 86.18 kg

DRUGS (5)
  1. AZITHROMYCIN ANHYDROUS. [Suspect]
     Active Substance: AZITHROMYCIN ANHYDROUS
     Indication: BRONCHITIS
     Dosage: ?          OTHER STRENGTH:500 IVPB X2 500MG ;?
     Dates: start: 20170807, end: 20170808
  2. OXYCODONE [Concomitant]
     Active Substance: OXYCODONE
  3. METHADONE [Concomitant]
     Active Substance: METHADONE HYDROCHLORIDE
  4. SUMATRYPTIN [Concomitant]
  5. ATENELOL [Concomitant]
     Active Substance: ATENOLOL

REACTIONS (22)
  - Diarrhoea [None]
  - Myalgia [None]
  - Arthralgia [None]
  - Nausea [None]
  - Dry skin [None]
  - Hypoacusis [None]
  - Tooth fracture [None]
  - Asthenia [None]
  - Hallucination, auditory [None]
  - Abdominal pain [None]
  - General physical health deterioration [None]
  - Bronchitis [None]
  - Fall [None]
  - Visual impairment [None]
  - Tooth disorder [None]
  - Tremor [None]
  - Gait disturbance [None]
  - Hypersomnia [None]
  - Skin exfoliation [None]
  - Pruritus [None]
  - Rash erythematous [None]
  - Somnolence [None]

NARRATIVE: CASE EVENT DATE: 20170807
